FAERS Safety Report 17581618 (Version 1)
Quarter: 2020Q1

REPORT INFORMATION
  Report Type: Spontaneous
  Country: IT (occurrence: IT)
  Receive Date: 20200325
  Receipt Date: 20200325
  Transmission Date: 20200409
  Serious: Yes (Other)
  Sender: FDA-Public Use
  Company Number: IT-CELGENEUS-ITA-20200308097

PATIENT
  Age: 68 Year
  Sex: Male
  Weight: 71 kg

DRUGS (2)
  1. GEMSOL [Concomitant]
     Active Substance: GEMCITABINE HYDROCHLORIDE
     Indication: ADENOCARCINOMA PANCREAS
     Route: 065
     Dates: start: 20190628
  2. ABRAXANE [Suspect]
     Active Substance: PACLITAXEL
     Indication: ADENOCARCINOMA PANCREAS
     Route: 065
     Dates: start: 20190628

REACTIONS (2)
  - Leukocytosis [Recovering/Resolving]
  - Neutrophilia [Recovering/Resolving]

NARRATIVE: CASE EVENT DATE: 20200311
